FAERS Safety Report 6932859-8 (Version None)
Quarter: 2010Q3

REPORT INFORMATION
  Report Type: 
  Country: None (occurrence: None)
  Receive Date: 20100819
  Receipt Date: 20100809
  Transmission Date: 20110219
  Serious: Yes (Other)
  Sender: FDA-Public Use
  Company Number: BR-PFIZER INC-2010100171

PATIENT
  Age: 57 Year
  Sex: Female
  Weight: 73 kg

DRUGS (4)
  1. CHAMPIX [Suspect]
     Indication: NICOTINE DEPENDENCE
     Dosage: 1 MG, 1X/DAY
     Route: 048
     Dates: start: 20100628, end: 20100101
  2. CHAMPIX [Suspect]
     Indication: TOBACCO ABUSE
     Dosage: 1 MG, 2X/DAY, EVERY 12 HOURS
     Route: 048
     Dates: start: 20100101, end: 20100802
  3. BENICAR [Concomitant]
     Indication: BLOOD PRESSURE INCREASED
     Dosage: UNK
     Dates: start: 20080101
  4. LIVIAL [Concomitant]
     Dosage: UNK

REACTIONS (2)
  - BLOOD PRESSURE INCREASED [None]
  - OCULAR VASCULAR DISORDER [None]
